FAERS Safety Report 7829200-5 (Version None)
Quarter: 2011Q4

REPORT INFORMATION
  Report Type: 
  Country: None (occurrence: None)
  Receive Date: 20111020
  Receipt Date: 20111014
  Transmission Date: 20120403
  Serious: Yes (Other)
  Sender: FDA-Public Use
  Company Number: PHHY2011JP91764

PATIENT

DRUGS (3)
  1. VOLTAREN [Suspect]
     Route: 048
  2. TIZANIDINE HCL [Suspect]
     Route: 048
  3. LEXOTAN [Concomitant]
     Route: 048

REACTIONS (1)
  - SHOCK [None]
